FAERS Safety Report 4653857-3 (Version None)
Quarter: 2005Q2

REPORT INFORMATION
  Report Type: 
  Country: None (occurrence: None)
  Receive Date: 20050404
  Receipt Date: 20050118
  Transmission Date: 20051028
  Serious: No
  Sender: FDA-Public Use
  Company Number: USA050188693

PATIENT
  Age: 73 Year
  Sex: Male
  Weight: 98 kg

DRUGS (3)
  1. CYMBALTA [Suspect]
     Indication: MUSCULOSKELETAL DISORDER
     Dosage: 60 MG AT NOON
  2. CASODEX [Concomitant]
  3. LUPRON [Concomitant]

REACTIONS (5)
  - AMNESIA [None]
  - ASTHENIA [None]
  - BRADYPHRENIA [None]
  - FEELING ABNORMAL [None]
  - PROSTATIC SPECIFIC ANTIGEN INCREASED [None]
